FAERS Safety Report 13555933 (Version 1)
Quarter: 2017Q2

REPORT INFORMATION
  Report Type: Spontaneous
  Country: US (occurrence: US)
  Receive Date: 20170517
  Receipt Date: 20170517
  Transmission Date: 20170830
  Serious: No
  Sender: FDA-Public Use
  Company Number: US-SA-2016SA207642

PATIENT
  Age: 69 Year
  Sex: Male
  Weight: 113.3 kg

DRUGS (7)
  1. SOLOSTAR [Concomitant]
     Active Substance: DEVICE
     Dosage: DOSE:73 UNIT(S)
     Route: 065
     Dates: start: 20161109
  2. TOUJEO [Suspect]
     Active Substance: INSULIN GLARGINE
     Indication: TYPE 2 DIABETES MELLITUS
     Dosage: DOSE:75 UNIT(S)
     Route: 065
     Dates: start: 201611
  3. TOUJEO [Suspect]
     Active Substance: INSULIN GLARGINE
     Indication: TYPE 2 DIABETES MELLITUS
     Dosage: DOSE:73 UNIT(S)
     Route: 065
     Dates: start: 20161109
  4. TOUJEO [Suspect]
     Active Substance: INSULIN GLARGINE
     Indication: TYPE 2 DIABETES MELLITUS
     Route: 065
     Dates: start: 201611
  5. SOLOSTAR [Concomitant]
     Active Substance: DEVICE
     Dosage: DOSE:75 UNIT(S)
     Route: 065
     Dates: start: 201611
  6. LANTUS [Concomitant]
     Active Substance: INSULIN GLARGINE
  7. SOLOSTAR [Concomitant]
     Active Substance: DEVICE
     Route: 065
     Dates: start: 201611

REACTIONS (2)
  - Blood glucose increased [Unknown]
  - Blood glucose decreased [Unknown]

NARRATIVE: CASE EVENT DATE: 20161109
